FAERS Safety Report 21677953 (Version 1)
Quarter: 2022Q4

REPORT INFORMATION
  Report Type: Spontaneous
  Country: PL (occurrence: PL)
  Receive Date: 20221203
  Receipt Date: 20221203
  Transmission Date: 20230113
  Serious: Yes (Other)
  Sender: FDA-Public Use
  Company Number: None

PATIENT
  Age: 71 Year
  Sex: Female
  Weight: 55 kg

DRUGS (1)
  1. HYDROXYUREA [Suspect]
     Active Substance: HYDROXYUREA
     Indication: Essential thrombocythaemia
     Dosage: STRENGTH :  1000 MG, DURATION : 417 DAYS
     Route: 065
     Dates: start: 20170217, end: 20180410

REACTIONS (1)
  - Ulcer [Recovered/Resolved]

NARRATIVE: CASE EVENT DATE: 20180410
